FAERS Safety Report 9562364 (Version 1)
Quarter: 2013Q3

REPORT INFORMATION
  Report Type: Spontaneous
  Country: DE (occurrence: DE)
  Receive Date: 20130927
  Receipt Date: 20130927
  Transmission Date: 20140515
  Serious: Yes (Hospitalization)
  Sender: FDA-Public Use
  Company Number: DE-ROCHE-1281108

PATIENT
  Age: 50 Year
  Sex: Male

DRUGS (1)
  1. ZELBORAF [Suspect]
     Indication: MALIGNANT MELANOMA
     Route: 065
     Dates: start: 20130806, end: 20130812

REACTIONS (2)
  - Abdominal pain [Recovering/Resolving]
  - Pancreatitis acute [Recovering/Resolving]
